FAERS Safety Report 12947597 (Version 2)
Quarter: 2016Q4

REPORT INFORMATION
  Report Type: Spontaneous
  Country: US (occurrence: US)
  Receive Date: 20161116
  Receipt Date: 20161209
  Transmission Date: 20170207
  Serious: No
  Sender: FDA-Public Use
  Company Number: US-BAYER-2016-218210

PATIENT
  Age: 63 Year
  Sex: Female
  Weight: 74.83 kg

DRUGS (2)
  1. ALEVE [Suspect]
     Active Substance: NAPROXEN SODIUM
     Indication: PAIN
     Dosage: 3 DF, UNK
     Route: 048
     Dates: start: 201610, end: 201611
  2. ALEVE [Suspect]
     Active Substance: NAPROXEN SODIUM
     Indication: BACK PAIN

REACTIONS (5)
  - Epigastric discomfort [Unknown]
  - Device adhesion issue [None]
  - Device ineffective [Unknown]
  - Drug effect incomplete [Unknown]
  - Product use issue [Unknown]
